FAERS Safety Report 24006460 (Version 1)
Quarter: 2024Q2

REPORT INFORMATION
  Report Type: Spontaneous
  Country: BR (occurrence: BR)
  Receive Date: 20240624
  Receipt Date: 20240624
  Transmission Date: 20240716
  Serious: Yes (Death, Hospitalization, Other)
  Sender: FDA-Public Use
  Company Number: BR-JNJFOC-20240654092

PATIENT

DRUGS (1)
  1. INFLIXIMAB [Suspect]
     Active Substance: INFLIXIMAB
     Indication: Product used for unknown indication
     Route: 041

REACTIONS (9)
  - Histoplasmosis [Fatal]
  - Pancreatitis [Unknown]
  - Pneumonia fungal [Unknown]
  - Crohn^s disease [Unknown]
  - Tendonitis [Unknown]
  - Weight decreased [Unknown]
  - Neoplasm [Unknown]
  - SARS-CoV-2 test positive [Unknown]
  - Labyrinthitis [Unknown]

NARRATIVE: CASE EVENT DATE: 20230101
